FAERS Safety Report 8795265 (Version 2)
Quarter: 2015Q1

REPORT INFORMATION
  Report Type: Report from Study
  Country: US (occurrence: US)
  Receive Date: 20120917
  Receipt Date: 20150331
  Transmission Date: 20150721
  Serious: Yes (Death)
  Sender: FDA-Public Use
  Company Number: US-ROCHE-1128694

PATIENT
  Sex: Male

DRUGS (9)
  1. LEUCOVORIN [Concomitant]
     Active Substance: LEUCOVORIN
     Dosage: DOSE RECEIVED ON 20/OCT/2006
     Route: 042
  2. AVASTIN [Suspect]
     Active Substance: BEVACIZUMAB
     Indication: METASTASES TO LIVER
     Route: 042
     Dates: start: 20050201
  3. ZOFRAN [Concomitant]
     Active Substance: ONDANSETRON HYDROCHLORIDE
     Dosage: DOSE RECEIVED ON 20/OCT/2006
     Route: 042
  4. NEUPOGEN [Concomitant]
     Active Substance: FILGRASTIM
     Dosage: DOSE RECEIVED ON 20/OCT/2006
     Route: 058
  5. ATROPINE [Concomitant]
     Active Substance: ATROPINE
     Dosage: DOSE RECEIVED ON 20/OCT/2006
     Route: 042
  6. DECADRON [Concomitant]
     Active Substance: DEXAMETHASONE
     Dosage: DOSE RECEIVED ON 20/OCT/2006
     Route: 042
  7. CAMPTOSAR [Concomitant]
     Active Substance: IRINOTECAN HYDROCHLORIDE
     Dosage: DOSE RECEIVED ON 20/OCT/2006
     Route: 042
  8. AVASTIN [Suspect]
     Active Substance: BEVACIZUMAB
     Indication: COLON CANCER
     Dosage: DOSE RECEIVED ON 20/OCT/2006
     Route: 042
  9. 5-FLUOROURACIL [Concomitant]
     Active Substance: FLUOROURACIL
     Dosage: DOSE RECEIVED ON 20/OCT/2006
     Route: 042

REACTIONS (2)
  - Off label use [Unknown]
  - Death [Fatal]
